FAERS Safety Report 25652994 (Version 2)
Quarter: 2025Q3

REPORT INFORMATION
  Report Type: Spontaneous
  Country: EU (occurrence: EU)
  Receive Date: 20250807
  Receipt Date: 20250915
  Transmission Date: 20251021
  Serious: Yes (Other)
  Sender: DECIPHERA PHARMACEUTICALS
  Company Number: EU-DECIPHERA PHARMACEUTICALS LLC-2025CY000823

PATIENT
  Age: 58 Year
  Sex: Male

DRUGS (5)
  1. QINLOCK [Suspect]
     Active Substance: RIPRETINIB
     Indication: Gastrointestinal stromal tumour
     Dosage: 150 MILLIGRAM, QD
     Route: 048
     Dates: start: 20250212, end: 2025
  2. QINLOCK [Suspect]
     Active Substance: RIPRETINIB
     Dosage: 150 MILLIGRAM, BID
     Route: 048
     Dates: start: 2025
  3. DEXAMETHASONE [Concomitant]
     Active Substance: DEXAMETHASONE
     Indication: Product used for unknown indication
     Dosage: 4 MILLIGRAM, BID
  4. METOPROLOL [Concomitant]
     Active Substance: METOPROLOL
     Indication: Product used for unknown indication
     Dosage: 25 MILLIGRAM, BID
  5. PANTOPRAZOLE [Concomitant]
     Active Substance: PANTOPRAZOLE
     Indication: Product used for unknown indication
     Dosage: 40 MILLIGRAM, BID

REACTIONS (7)
  - Metastases to liver [Unknown]
  - Metastases to peritoneum [Unknown]
  - Metastases to bone [Unknown]
  - Insomnia [Unknown]
  - Drug effect less than expected [Unknown]
  - Inappropriate schedule of product administration [Unknown]
  - Incorrect dosage administered [Unknown]

NARRATIVE: CASE EVENT DATE: 20250101
